FAERS Safety Report 7657824-7 (Version None)
Quarter: 2011Q3

REPORT INFORMATION
  Report Type: 
  Country: None (occurrence: None)
  Receive Date: 20110805
  Receipt Date: 20110729
  Transmission Date: 20111222
  Serious: No
  Sender: FDA-Public Use
  Company Number: US-BIOGENIDEC-2010BI041706

PATIENT
  Sex: Female

DRUGS (1)
  1. TYSABRI [Suspect]
     Indication: MULTIPLE SCLEROSIS
     Route: 042
     Dates: start: 20091216, end: 20100917

REACTIONS (5)
  - COUGH [None]
  - CHEST PAIN [None]
  - NASOPHARYNGITIS [None]
  - RASH GENERALISED [None]
  - DERMATITIS ALLERGIC [None]
